FAERS Safety Report 15658096 (Version 1)
Quarter: 2018Q4

REPORT INFORMATION
  Report Type: Spontaneous
  Country: ES (occurrence: NL)
  Receive Date: 20181126
  Receipt Date: 20181126
  Transmission Date: 20190205
  Serious: Yes (Death, Other)
  Sender: FDA-Public Use
  Company Number: ES-OTSUKA-2018_037224

PATIENT
  Age: 19 Year
  Sex: Male

DRUGS (1)
  1. ABILIFY [Suspect]
     Active Substance: ARIPIPRAZOLE
     Indication: PSYCHOTIC DISORDER
     Dosage: UNK
     Route: 065

REACTIONS (6)
  - Cardiac arrest [Fatal]
  - Substance abuse [Unknown]
  - Psychomotor hyperactivity [Unknown]
  - Circulatory collapse [Fatal]
  - Coma [Fatal]
  - Product use in unapproved indication [Unknown]
